FAERS Safety Report 23105174 (Version 1)
Quarter: 2023Q4

REPORT INFORMATION
  Report Type: Spontaneous
  Country: GR (occurrence: GR)
  Receive Date: 20231025
  Receipt Date: 20231025
  Transmission Date: 20240110
  Serious: Yes (Death, Other)
  Sender: FDA-Public Use
  Company Number: GR-STRIDES ARCOLAB LIMITED-2023SP015896

PATIENT
  Age: 46 Year
  Sex: Female

DRUGS (12)
  1. PREDNISOLONE [Suspect]
     Active Substance: PREDNISOLONE
     Indication: Paraneoplastic pemphigus
     Dosage: 1 MILLIGRAM/KILOGRAM; ONCE A DAY; FIRST-LINE
     Route: 048
  2. PREDNISOLONE [Suspect]
     Active Substance: PREDNISOLONE
     Indication: Cervix carcinoma stage IV
     Dosage: 50 MILLIGRAM (TABLET); SECOND LINE TREATMENT
     Route: 048
  3. PREDNISOLONE [Suspect]
     Active Substance: PREDNISOLONE
     Dosage: 20 MILLIGRAM, QD; TABLET; ONCE A DAY
     Route: 048
  4. PREDNISOLONE [Suspect]
     Active Substance: PREDNISOLONE
     Dosage: 50 MILLIGRAM, PER DAY; SOLUTION
     Route: 048
  5. CISPLATIN [Suspect]
     Active Substance: CISPLATIN
     Indication: Paraneoplastic pemphigus
     Dosage: UNK, EVERY 3 WEEKS; SECOND LINE TREATMENT
     Route: 065
  6. CISPLATIN [Suspect]
     Active Substance: CISPLATIN
     Indication: Cervix carcinoma stage IV
  7. AZATHIOPRINE [Suspect]
     Active Substance: AZATHIOPRINE
     Indication: Paraneoplastic pemphigus
     Dosage: 200 MILLIGRAM PER DAY; SECOND LINE TREATMENT
     Route: 048
  8. AZATHIOPRINE [Suspect]
     Active Substance: AZATHIOPRINE
     Indication: Cervix carcinoma stage IV
  9. PEMBROLIZUMAB [Suspect]
     Active Substance: PEMBROLIZUMAB
     Indication: Paraneoplastic pemphigus
     Dosage: UNK
     Route: 065
  10. PEMBROLIZUMAB [Suspect]
     Active Substance: PEMBROLIZUMAB
     Indication: Cervix carcinoma stage IV
  11. TOPOTECAN [Concomitant]
     Active Substance: TOPOTECAN HYDROCHLORIDE
     Indication: Paraneoplastic pemphigus
     Dosage: UNK, EVERY 3 WEEKS; SECOND LINE TREATMENT
     Route: 065
  12. TOPOTECAN [Concomitant]
     Active Substance: TOPOTECAN HYDROCHLORIDE
     Indication: Cervix carcinoma stage IV

REACTIONS (6)
  - Multiple organ dysfunction syndrome [Fatal]
  - Disease progression [Fatal]
  - Drug ineffective [Fatal]
  - Paraneoplastic pemphigus [Recovered/Resolved]
  - Condition aggravated [Recovered/Resolved]
  - Off label use [Unknown]
